FAERS Safety Report 8263789-X (Version None)
Quarter: 2012Q2

REPORT INFORMATION
  Report Type: 
  Country: None (occurrence: None)
  Receive Date: 20120405
  Receipt Date: 20120402
  Transmission Date: 20120825
  Serious: Yes (Other)
  Sender: FDA-Public Use
  Company Number: US-PFIZER INC-2012084138

PATIENT

DRUGS (2)
  1. IBUPROFEN (ADVIL) [Suspect]
     Dosage: UNK
  2. TYLENOL [Concomitant]
     Indication: PAIN
     Dosage: UNK

REACTIONS (3)
  - FOREIGN BODY [None]
  - CHOKING [None]
  - DYSPHAGIA [None]
